FAERS Safety Report 25084152 (Version 1)
Quarter: 2025Q1

REPORT INFORMATION
  Report Type: Report from Study
  Country: US (occurrence: US)
  Receive Date: 20250317
  Receipt Date: 20250317
  Transmission Date: 20250409
  Serious: Yes (Other)
  Sender: ACADIA PHARMACEUTICALS
  Company Number: US-ACADIA PHARMACEUTICALS INC.-ACA-2025-PIM-002813

PATIENT
  Age: 56 Year
  Sex: Female

DRUGS (1)
  1. NUPLAZID [Suspect]
     Active Substance: PIMAVANSERIN TARTRATE
     Indication: Parkinson^s disease psychosis
     Dosage: 34 MILLIGRAM, QD
     Route: 048

REACTIONS (6)
  - Brain injury [Unknown]
  - Parkinson^s disease [Unknown]
  - Concussion [Unknown]
  - Bedridden [Unknown]
  - Migraine [Unknown]
  - Fall [Unknown]

NARRATIVE: CASE EVENT DATE: 20230101
